FAERS Safety Report 17202713 (Version 1)
Quarter: 2019Q4

REPORT INFORMATION
  Report Type: Spontaneous
  Country: CN (occurrence: CN)
  Receive Date: 20191226
  Receipt Date: 20191226
  Transmission Date: 20200122
  Serious: Yes (Hospitalization)
  Sender: FDA-Public Use
  Company Number: CN-PFIZER INC-2019550852

PATIENT
  Age: 92 Year
  Sex: Male
  Weight: 50 kg

DRUGS (2)
  1. LIPITOR [Suspect]
     Active Substance: ATORVASTATIN CALCIUM
     Indication: CORONARY ARTERY DISEASE
     Dosage: 20 MG, 1X/DAY
     Route: 048
     Dates: start: 20191114, end: 20191121
  2. KUO SHU [Suspect]
     Active Substance: PAPAVERINE HYDROCHLORIDE
     Indication: VENOUS THROMBOSIS
     Dosage: 60 MG, 1X/DAY
     Route: 041
     Dates: start: 20191114, end: 20191121

REACTIONS (3)
  - Jaundice [Recovering/Resolving]
  - Hepatic function abnormal [Recovering/Resolving]
  - Pruritus [Recovering/Resolving]

NARRATIVE: CASE EVENT DATE: 20191121
